FAERS Safety Report 10141440 (Version 1)
Quarter: 2014Q2

REPORT INFORMATION
  Report Type: Spontaneous
  Country: US (occurrence: US)
  Receive Date: 20140429
  Receipt Date: 20140429
  Transmission Date: 20141212
  Serious: Yes (Other)
  Sender: FDA-Public Use
  Company Number: CHPA2014US005812

PATIENT
  Age: 52 Year
  Sex: Female

DRUGS (4)
  1. VOLTAREN GEL [Suspect]
     Indication: ARTHRITIS
     Dosage: 4 G, BID
     Route: 061
  2. VOLTAREN GEL [Suspect]
     Indication: PAIN
  3. VOLTAREN GEL [Suspect]
     Indication: UNDERDOSE
  4. VOLTAREN GEL [Suspect]
     Indication: OFF LABEL USE

REACTIONS (5)
  - Arthritis [Unknown]
  - Arthralgia [Recovering/Resolving]
  - Disease recurrence [Recovering/Resolving]
  - Drug administered at inappropriate site [Unknown]
  - Therapeutic response changed [Unknown]
